FAERS Safety Report 6203863-2 (Version None)
Quarter: 2009Q2

REPORT INFORMATION
  Report Type: 
  Country: None (occurrence: None)
  Receive Date: 20090527
  Receipt Date: 20090518
  Transmission Date: 20091009
  Serious: Yes (Death, Other)
  Sender: FDA-Public Use
  Company Number: US-TEVA-195148USA

PATIENT
  Sex: Male

DRUGS (2)
  1. CEPHALEXIN [Suspect]
  2. PHENYTOIN [Suspect]

REACTIONS (9)
  - ACUTE GENERALISED EXANTHEMATOUS PUSTULOSIS [None]
  - CARDIAC ARREST [None]
  - DERMATITIS ALLERGIC [None]
  - DERMATITIS BULLOUS [None]
  - DRUG RASH WITH EOSINOPHILIA AND SYSTEMIC SYMPTOMS [None]
  - ERYTHEMA MULTIFORME [None]
  - MULTI-ORGAN FAILURE [None]
  - STEVENS-JOHNSON SYNDROME [None]
  - TOXIC EPIDERMAL NECROLYSIS [None]
